FAERS Safety Report 19687179 (Version 2)
Quarter: 2021Q3

REPORT INFORMATION
  Report Type: Report from Study
  Country: CN (occurrence: CN)
  Receive Date: 20210811
  Receipt Date: 20210817
  Transmission Date: 20211014
  Serious: Yes (Hospitalization)
  Sender: FDA-Public Use
  Company Number: CN-EISAI MEDICAL RESEARCH-EC-2021-097570

PATIENT
  Age: 67 Year
  Sex: Female
  Weight: 56 kg

DRUGS (15)
  1. CISPLATIN. [Suspect]
     Active Substance: CISPLATIN
     Indication: NON-SMALL CELL LUNG CANCER METASTATIC
     Dosage: (TOTAL DAILY DOSE: 116 MG)
     Route: 041
     Dates: start: 20210702, end: 20210702
  2. IRBESARTAN. [Concomitant]
     Active Substance: IRBESARTAN
     Dates: start: 201301
  3. MINERALS NOS;VITAMINS NOS [Concomitant]
     Active Substance: MINERALS\VITAMINS
     Dates: start: 20210521
  4. LENVATINIB [Suspect]
     Active Substance: LENVATINIB
     Indication: NON-SMALL CELL LUNG CANCER METASTATIC
     Route: 048
     Dates: start: 20210702
  5. AMLODIPINE BESYLATE. [Concomitant]
     Active Substance: AMLODIPINE BESYLATE
     Dates: start: 201301
  6. GLICLAZIDE MR [Concomitant]
     Active Substance: GLICLAZIDE
     Dates: start: 201401
  7. ACARBOSE. [Concomitant]
     Active Substance: ACARBOSE
     Dates: start: 201401
  8. PEMBROLIZUMAB. [Suspect]
     Active Substance: PEMBROLIZUMAB
     Indication: NON-SMALL CELL LUNG CANCER METASTATIC
     Route: 041
     Dates: start: 20210702, end: 20210702
  9. PEMETREXED. [Suspect]
     Active Substance: PEMETREXED
     Indication: NON-SMALL CELL LUNG CANCER METASTATIC
     Dosage: (TOTAL DAILY DOSE: 773 MG)
     Route: 041
     Dates: start: 20210702, end: 20210702
  10. CISPLATIN. [Suspect]
     Active Substance: CISPLATIN
     Dosage: (TOTAL DAILY DOSE: 116 MG)
     Route: 041
     Dates: start: 20210702
  11. OLMESARTAN/HYDROCHLOROTHIAZIDE [Concomitant]
     Active Substance: HYDROCHLOROTHIAZIDE\OLMESARTAN MEDOXOMIL
     Dates: start: 20210414
  12. PEMBROLIZUMAB. [Suspect]
     Active Substance: PEMBROLIZUMAB
     Route: 041
     Dates: start: 20210726
  13. PEMETREXED. [Suspect]
     Active Substance: PEMETREXED
     Dosage: (TOTAL DAILY DOSE: 773 MG)
     Route: 041
     Dates: start: 20210726
  14. ASPIRINE [Concomitant]
     Active Substance: ASPIRIN
     Dates: start: 201301
  15. METFORMIN HYDROCHLORIDE. [Concomitant]
     Active Substance: METFORMIN HYDROCHLORIDE
     Dates: start: 201401

REACTIONS (1)
  - Gastric mucosal lesion [Recovered/Resolved]

NARRATIVE: CASE EVENT DATE: 20210705
